FAERS Safety Report 8510868-5 (Version None)
Quarter: 2012Q3

REPORT INFORMATION
  Report Type: 
  Country: None (occurrence: None)
  Receive Date: 20120709
  Receipt Date: 20120709
  Transmission Date: 20120928
  Serious: Yes (Hospitalization)
  Sender: FDA-Public Use
  Company Number: None

PATIENT
  Sex: Female
  Weight: 51.9 kg

DRUGS (6)
  1. KEPPRA [Concomitant]
  2. ATOVAQUON [Concomitant]
  3. ERGOCALCIFEROL [Concomitant]
  4. NERATINIB (40MG, PFIZER) [Suspect]
     Indication: BREAST CANCER METASTATIC
     Dosage: 240MG, QD, PO
     Route: 048
     Dates: start: 20120214, end: 20120517
  5. DEXAMETHASONE [Concomitant]
  6. CALCIUM CARBONATE [Concomitant]

REACTIONS (1)
  - SYNCOPE [None]
